FAERS Safety Report 10185707 (Version 1)
Quarter: 2014Q2

REPORT INFORMATION
  Report Type: Report from Study
  Country: US (occurrence: US)
  Receive Date: 20140521
  Receipt Date: 20140521
  Transmission Date: 20141212
  Serious: Yes (Death)
  Sender: FDA-Public Use
  Company Number: PHEH2014US010113

PATIENT
  Sex: Female

DRUGS (2)
  1. SANDOSTATIN LAR DEPOT [Suspect]
     Indication: BENIGN NEOPLASM OF ISLETS OF LANGERHANS
     Dosage: 20 MG, UNK
  2. SANDOSTATIN LAR DEPOT [Suspect]
     Dosage: 30 MG, UNK

REACTIONS (1)
  - Death [Fatal]
